FAERS Safety Report 4279051-6 (Version None)
Quarter: 2004Q1

REPORT INFORMATION
  Report Type: 
  Country: None (occurrence: None)
  Receive Date: 20040126
  Receipt Date: 20040120
  Transmission Date: 20041129
  Serious: Yes (Hospitalization)
  Sender: FDA-Public Use
  Company Number: FR-BRISTOL-MYERS SQUIBB COMPANY-12482451

PATIENT
  Age: 28 Year
  Sex: Male

DRUGS (4)
  1. VIDEX EC [Suspect]
     Indication: HIV INFECTION
     Route: 048
     Dates: start: 20030506, end: 20031020
  2. LIPANTHYL [Suspect]
     Route: 048
     Dates: end: 20031020
  3. KALETRA [Suspect]
     Indication: HIV INFECTION
     Route: 048
     Dates: start: 20030506, end: 20031020
  4. VIREAD [Suspect]
     Indication: HIV INFECTION
     Route: 048
     Dates: start: 20020617, end: 20031020

REACTIONS (3)
  - HYPERHIDROSIS [None]
  - MALAISE [None]
  - RENAL FAILURE [None]
